FAERS Safety Report 7859122-5 (Version None)
Quarter: 2011Q4

REPORT INFORMATION
  Report Type: 
  Country: None (occurrence: None)
  Receive Date: 20111027
  Receipt Date: 20111025
  Transmission Date: 20120403
  Serious: Yes (Death, Hospitalization)
  Sender: FDA-Public Use
  Company Number: PHFR2011GB04973

PATIENT
  Sex: Male

DRUGS (8)
  1. ACETAMINOPHEN [Concomitant]
     Route: 048
  2. CLOZARIL [Suspect]
     Indication: SCHIZOPHRENIA
     Dosage: 425 MG
     Route: 048
     Dates: start: 20100329
  3. ATORVASTATIN [Concomitant]
     Dosage: 80 MG
     Route: 048
  4. GABAPENTIN [Concomitant]
     Dosage: 400 MG
     Route: 048
  5. OMEPRAZOLE [Concomitant]
     Dosage: 20 MG
     Route: 048
  6. VALPROATE SODIUM [Concomitant]
     Dosage: 200 MG
     Route: 048
  7. CITALOPRAM HYDROBROMIDE [Concomitant]
     Dosage: 60 MG
     Route: 048
  8. NAPROXEN [Concomitant]
     Route: 048

REACTIONS (4)
  - MYOCARDIAL INFARCTION [None]
  - ACUTE LEFT VENTRICULAR FAILURE [None]
  - BRONCHOPNEUMONIA [None]
  - CARDIAC ARREST [None]
